FAERS Safety Report 16891690 (Version 1)
Quarter: 2019Q4

REPORT INFORMATION
  Report Type: Spontaneous
  Country: US (occurrence: US)
  Receive Date: 20190813
  Receipt Date: 20190813
  Transmission Date: 20200122
  Serious: Yes (Hospitalization, Disabling)
  Sender: FDA-Public Use
  Company Number: None

PATIENT
  Age: 49 Year
  Sex: Female
  Weight: 81.65 kg

DRUGS (8)
  1. VITAMIN D3 2000 UNITS [Concomitant]
  2. TRADJENTA [Concomitant]
     Active Substance: LINAGLIPTIN
  3. RANITIDINE. [Concomitant]
     Active Substance: RANITIDINE
  4. ALBUTEROL INHALER [Concomitant]
     Active Substance: ALBUTEROL
  5. ALBERTEROL 083 NEBULIZER [Concomitant]
  6. FERROUS GLUCONATE 324MG [Concomitant]
  7. ZETIA [Suspect]
     Active Substance: EZETIMIBE
     Indication: LOW DENSITY LIPOPROTEIN INCREASED
     Dosage: ?          QUANTITY:1 DF DOSAGE FORM;?
     Route: 048
     Dates: end: 20190614
  8. NEBULIZER [Concomitant]
     Active Substance: DEVICE

REACTIONS (7)
  - Myalgia [None]
  - Chromaturia [None]
  - Palpitations [None]
  - Asthenia [None]
  - Dizziness [None]
  - Blood creatine phosphokinase increased [None]
  - Muscular weakness [None]

NARRATIVE: CASE EVENT DATE: 20190614
